FAERS Safety Report 5744070-7 (Version None)
Quarter: 2008Q2

REPORT INFORMATION
  Report Type: 
  Country: None (occurrence: None)
  Receive Date: 20080516
  Receipt Date: 20080516
  Transmission Date: 20081010
  Serious: Yes (Hospitalization)
  Sender: FDA-Public Use
  Company Number: None

PATIENT
  Age: 36 Year
  Sex: Male

DRUGS (1)
  1. OMEPRAZOLE [Suspect]
     Dosage: 20 MG PO DAILY
     Route: 048
     Dates: start: 20080102, end: 20080102

REACTIONS (7)
  - DYSARTHRIA [None]
  - LIP SWELLING [None]
  - OEDEMA PERIPHERAL [None]
  - PRURITUS [None]
  - SWOLLEN TONGUE [None]
  - URTICARIA [None]
  - WHEEZING [None]
